FAERS Safety Report 10261498 (Version 1)
Quarter: 2014Q2

REPORT INFORMATION
  Report Type: Spontaneous
  Country: AU (occurrence: None)
  Receive Date: 20140623
  Receipt Date: 20140623
  Transmission Date: 20141212
  Serious: Yes (Hospitalization)
  Sender: FDA-Public Use
  Company Number: NSR_01569_2014

PATIENT
  Age: 02 Month
  Sex: 0

DRUGS (1)
  1. PROPRANOLOL [Suspect]
     Indication: HAEMANGIOMA
     Dosage: PER DOSE

REACTIONS (4)
  - Heart rate decreased [None]
  - Hypotonia [None]
  - Apnoea neonatal [None]
  - Condition aggravated [None]
